FAERS Safety Report 7272185-3 (Version None)
Quarter: 2011Q1

REPORT INFORMATION
  Report Type: 
  Country: None (occurrence: None)
  Receive Date: 20110203
  Receipt Date: 20110121
  Transmission Date: 20110831
  Serious: Yes (Hospitalization)
  Sender: FDA-Public Use
  Company Number: PHHY2011ZA04932

PATIENT
  Age: 78 Year
  Sex: Female

DRUGS (5)
  1. ACLASTA [Suspect]
     Indication: OSTEOPOROSIS
     Dosage: 5 MG/100 ML
     Dates: start: 20100115
  2. ELTROXIN [Concomitant]
     Indication: HYPOTHYROIDISM
     Dosage: 0.05MG PER DAY
     Dates: start: 20080101
  3. WARFARIN SODIUM [Concomitant]
     Indication: PULMONARY EMBOLISM
     Dosage: UNK
     Dates: start: 20090101
  4. DISPRIN [Concomitant]
     Indication: BLOOD DISORDER
     Dosage: UNK
     Dates: start: 20090101
  5. CALTRATE PLUS [Concomitant]

REACTIONS (2)
  - FIBULA FRACTURE [None]
  - TIBIA FRACTURE [None]
